FAERS Safety Report 8304242-4 (Version None)
Quarter: 2012Q2

REPORT INFORMATION
  Report Type: 
  Country: None (occurrence: None)
  Receive Date: 20120423
  Receipt Date: 20120410
  Transmission Date: 20120825
  Serious: Yes (Death, Hospitalization)
  Sender: FDA-Public Use
  Company Number: FI-JNJFOC-20090908789

PATIENT
  Age: 55 Year
  Sex: Female

DRUGS (5)
  1. ACETAMINOPHEN [Suspect]
     Route: 048
  2. ACETAMINOPHEN [Suspect]
     Indication: BACK PAIN
     Route: 048
  3. METOPROLOL TARTRATE [Concomitant]
     Indication: HYPERTENSION
  4. ENALAPRIL [Concomitant]
     Indication: HYPERTENSION
  5. CODEINE SULFATE [Suspect]
     Indication: BACK PAIN
     Route: 048

REACTIONS (9)
  - PETECHIAE [None]
  - OLIGURIA [None]
  - ANURIA [None]
  - OVERDOSE [None]
  - BRAIN OEDEMA [None]
  - ENCEPHALOPATHY [None]
  - LETHARGY [None]
  - HEPATIC FAILURE [None]
  - CONTUSION [None]
